FAERS Safety Report 7099270-3 (Version None)
Quarter: 2010Q4

REPORT INFORMATION
  Report Type: 
  Country: None (occurrence: None)
  Receive Date: 20101112
  Receipt Date: 20101103
  Transmission Date: 20110411
  Serious: Yes (Hospitalization)
  Sender: FDA-Public Use
  Company Number: US-ABBOTT-09P-163-0503255-00

PATIENT
  Sex: Female
  Weight: 68.1 kg

DRUGS (7)
  1. HUMIRA [Suspect]
     Indication: CROHN'S DISEASE
     Route: 058
     Dates: start: 20080716, end: 20090109
  2. AZASAN [Concomitant]
     Indication: CROHN'S DISEASE
     Dates: start: 20080618
  3. LORTAB [Concomitant]
     Indication: ABDOMINAL PAIN
     Dosage: 5-500 MG
     Dates: start: 20080618
  4. PENTASA [Concomitant]
     Indication: ABDOMINAL PAIN
     Dates: start: 20080515
  5. ENTOCORT EC [Concomitant]
     Indication: CROHN'S DISEASE
     Dates: start: 20080515
  6. YAZ [Concomitant]
     Indication: CONTRACEPTION
     Dosage: .02-3 (24)S DIRECTED
     Dates: start: 20040101
  7. PHENERGAN [Concomitant]
     Indication: NAUSEA
     Dates: start: 20080709

REACTIONS (1)
  - SMALL INTESTINAL OBSTRUCTION [None]
